FAERS Safety Report 5816764-6 (Version None)
Quarter: 2008Q3

REPORT INFORMATION
  Report Type: 
  Country: None (occurrence: None)
  Receive Date: 20080721
  Receipt Date: 20080711
  Transmission Date: 20090109
  Serious: Yes (Hospitalization)
  Sender: FDA-Public Use
  Company Number: SE-BOEHRINGER INGELHEIM GMBH, GERMANY-2008-DE-02804DE

PATIENT
  Sex: Female
  Weight: 57.3 kg

DRUGS (4)
  1. PRAMIPEXOLE DIHYDROCHLORIDE [Suspect]
     Indication: PARKINSON'S DISEASE
     Route: 048
     Dates: start: 20080421, end: 20080511
  2. MADOPARK [Concomitant]
     Indication: PARKINSON'S DISEASE
     Route: 048
     Dates: start: 19980218
  3. COMTESS [Concomitant]
     Indication: PARKINSON'S DISEASE
     Route: 048
     Dates: start: 19981118
  4. ORSTANORM [Concomitant]
     Indication: HYPOTENSION
     Route: 048
     Dates: start: 20070101

REACTIONS (2)
  - FALL [None]
  - FEMORAL NECK FRACTURE [None]
